FAERS Safety Report 9263578 (Version 2)
Quarter: 2013Q2

REPORT INFORMATION
  Report Type: Spontaneous
  Country: US (occurrence: US)
  Receive Date: 20130430
  Receipt Date: 20130520
  Transmission Date: 20140414
  Serious: Yes (Hospitalization, Other)
  Sender: FDA-Public Use
  Company Number: US-BAXTER-2013BAX015639

PATIENT
  Age: 46 Year
  Sex: Female

DRUGS (10)
  1. DIANEAL LOW CALCIUM [Suspect]
     Indication: PERITONEAL DIALYSIS
     Route: 033
     Dates: start: 2011, end: 20130412
  2. DIANEAL LOW CALCIUM [Suspect]
     Route: 033
     Dates: start: 20130415
  3. DIANEAL LOW CALCIUM (ULTRABAG) [Suspect]
     Indication: PERITONEAL DIALYSIS
     Route: 033
     Dates: start: 2011, end: 20130412
  4. DIANEAL LOW CALCIUM (ULTRABAG) [Suspect]
     Route: 033
     Dates: start: 20130415
  5. EXTRANEAL [Suspect]
     Indication: PERITONEAL DIALYSIS
     Route: 033
     Dates: start: 2011, end: 20130412
  6. EXTRANEAL [Suspect]
     Route: 033
     Dates: start: 20130415
  7. PREDNISONE [Suspect]
     Indication: ASTHENIA
     Route: 065
     Dates: start: 2011, end: 201304
  8. PREDNISONE [Suspect]
     Route: 065
     Dates: start: 201304, end: 201304
  9. PREDNISONE [Suspect]
     Route: 065
     Dates: start: 201304
  10. CHLOROQUINE [Suspect]
     Indication: PRODUCT USED FOR UNKNOWN INDICATION
     Route: 065
     Dates: end: 201304

REACTIONS (8)
  - Muscular weakness [Recovering/Resolving]
  - Drug level above therapeutic [Unknown]
  - Secondary immunodeficiency [Unknown]
  - Arthritis infective [Recovering/Resolving]
  - Pharyngitis [Recovering/Resolving]
  - Asthenia [Unknown]
  - Fluid retention [Recovering/Resolving]
  - Pyrexia [Recovering/Resolving]
